FAERS Safety Report 14215251 (Version 1)
Quarter: 2017Q4

REPORT INFORMATION
  Report Type: Spontaneous
  Country: US (occurrence: US)
  Receive Date: 20171122
  Receipt Date: 20171122
  Transmission Date: 20180321
  Serious: Yes (Other)
  Sender: FDA-Public Use
  Company Number: US-JNJFOC-20170911203

PATIENT
  Sex: Male
  Weight: 86.18 kg

DRUGS (1)
  1. ZYTIGA [Suspect]
     Active Substance: ABIRATERONE ACETATE
     Indication: PROSTATE CANCER
     Dosage: 4 TABLETS ONCE A DAY.
     Route: 048
     Dates: end: 20170912

REACTIONS (1)
  - Fall [Unknown]

NARRATIVE: CASE EVENT DATE: 2017
